FAERS Safety Report 9486712 (Version 1)
Quarter: 2013Q3

REPORT INFORMATION
  Report Type: Spontaneous
  Country: TR (occurrence: None)
  Receive Date: 20130823
  Receipt Date: 20130823
  Transmission Date: 20140515
  Serious: Yes (Other)
  Sender: FDA-Public Use
  Company Number: B0916330A

PATIENT
  Age: 25 Year
  Sex: Male

DRUGS (1)
  1. EPIVIR-HBV [Suspect]
     Indication: HEPATITIS B SURFACE ANTIGEN

REACTIONS (1)
  - Hepatitis B [None]
